FAERS Safety Report 6566101-7 (Version None)
Quarter: 2010Q1

REPORT INFORMATION
  Report Type: 
  Country: None (occurrence: None)
  Receive Date: 20100202
  Receipt Date: 20100125
  Transmission Date: 20100710
  Serious: No
  Sender: FDA-Public Use
  Company Number: US-B.I. PHARMACEUTICALS,INC./RIDGEFIELD-2010-BP-00982BP

PATIENT
  Sex: Male

DRUGS (5)
  1. SPIRIVA [Suspect]
     Indication: CHRONIC OBSTRUCTIVE PULMONARY DISEASE
     Dosage: 18 MCG
     Route: 055
     Dates: start: 20091201, end: 20100125
  2. LEVOXYL [Concomitant]
     Indication: HYPOTHYROIDISM
     Dosage: 250 MCG
     Dates: start: 20080101
  3. TESTOSTERONE [Concomitant]
     Indication: HORMONE LEVEL ABNORMAL
     Dosage: 1 ML
     Dates: start: 20080101
  4. SINGULAIR [Concomitant]
     Indication: SINUSITIS
     Dates: start: 20080101
  5. LORATADINE [Concomitant]
     Indication: SINUSITIS
     Dates: start: 20080101

REACTIONS (5)
  - DRY MOUTH [None]
  - DYSPNOEA [None]
  - SINUS DISORDER [None]
  - SINUSITIS [None]
  - THROAT IRRITATION [None]
